FAERS Safety Report 25611342 (Version 2)
Quarter: 2025Q3

REPORT INFORMATION
  Report Type: Spontaneous
  Country: EU (occurrence: EU)
  Receive Date: 20250728
  Receipt Date: 20250801
  Transmission Date: 20251021
  Serious: Yes (Other)
  Sender: EMD SERONO INC
  Company Number: EU-Merck Healthcare KGaA-2025036724

PATIENT
  Age: 41 Year
  Sex: Male

DRUGS (2)
  1. MAVENCLAD [Suspect]
     Active Substance: CLADRIBINE
     Indication: Relapsing-remitting multiple sclerosis
     Dates: start: 20250403, end: 20250407
  2. MAVENCLAD [Suspect]
     Active Substance: CLADRIBINE
     Dates: start: 20250503, end: 20250507

REACTIONS (1)
  - Atrial fibrillation [Recovering/Resolving]

NARRATIVE: CASE EVENT DATE: 20250527
